FAERS Safety Report 14013826 (Version 1)
Quarter: 2017Q3

REPORT INFORMATION
  Report Type: Report from Study
  Country: US (occurrence: US)
  Receive Date: 20170926
  Receipt Date: 20170926
  Transmission Date: 20171128
  Serious: Yes (Death, Other)
  Sender: FDA-Public Use
  Company Number: US-EXELIXIS-CABO-17010576

PATIENT
  Sex: Male

DRUGS (15)
  1. AMLODIPINE [Concomitant]
     Active Substance: AMLODIPINE BESYLATE
  2. AZELASTINE HCL [Concomitant]
     Active Substance: AZELASTINE HYDROCHLORIDE
  3. CARVEDILOL. [Concomitant]
     Active Substance: CARVEDILOL
  4. CLINDAMYCIN PHOSPHATE. [Concomitant]
     Active Substance: CLINDAMYCIN PHOSPHATE
  5. SENEXON [Concomitant]
     Active Substance: SENNOSIDES A AND B
  6. VALACYCLOVIR [Concomitant]
     Active Substance: VALACYCLOVIR HYDROCHLORIDE
  7. DEXAMETHASON [Concomitant]
     Active Substance: DEXAMETHASONE
  8. IPRATROPIUM [Concomitant]
     Active Substance: IPRATROPIUM
  9. SANCUSO [Concomitant]
     Active Substance: GRANISETRON
  10. PANTOPRAZOLE SODIUM. [Concomitant]
     Active Substance: PANTOPRAZOLE SODIUM
  11. CABOMETYX [Suspect]
     Active Substance: CABOZANTINIB S-MALATE
     Indication: RENAL CANCER
     Dosage: 20 MG, QD
     Route: 048
  12. TRANSDERM SCOP [Concomitant]
     Active Substance: SCOPOLAMINE
  13. CLOBETASOL [Concomitant]
     Active Substance: CLOBETASOL
  14. ALLOPURINOL. [Concomitant]
     Active Substance: ALLOPURINOL
  15. VITAMIN B12 [Concomitant]
     Active Substance: CYANOCOBALAMIN

REACTIONS (2)
  - Cellulitis [Unknown]
  - Sepsis [Fatal]
